FAERS Safety Report 4450932-3 (Version None)
Quarter: 2004Q3

REPORT INFORMATION
  Report Type: 
  Country: None (occurrence: None)
  Receive Date: 20040916
  Receipt Date: 20030501
  Transmission Date: 20050211
  Serious: Yes (Other)
  Sender: FDA-Public Use
  Company Number: US-BRISTOL-MYERS SQUIBB COMPANY-12271359

PATIENT
  Age: 50 Year
  Sex: Female

DRUGS (3)
  1. STADOL [Suspect]
     Indication: PAIN IN EXTREMITY
     Dates: start: 19940101, end: 19970101
  2. STADOL [Suspect]
     Indication: BACK PAIN
     Dates: start: 19940101, end: 19970101
  3. STADOL [Suspect]
     Indication: HEADACHE
     Dates: start: 19940101, end: 19970101

REACTIONS (1)
  - DEPENDENCE [None]
